FAERS Safety Report 15496971 (Version 1)
Quarter: 2018Q4

REPORT INFORMATION
  Report Type: Report from Study
  Country: None (occurrence: RO)
  Receive Date: 20181015
  Receipt Date: 20181015
  Transmission Date: 20190205
  Serious: Yes (Hospitalization)
  Sender: FDA-Public Use
  Company Number: RO-ABBVIE-18S-135-2515721-00

PATIENT
  Age: 70 Year
  Sex: Female

DRUGS (10)
  1. VIEKIRAX [Suspect]
     Active Substance: OMBITASVIR\PARITAPREVIR\RITONAVIR
     Indication: HEPATITIS C
     Route: 048
     Dates: start: 20180428, end: 20180720
  2. TOTAL CLEANSE [Concomitant]
     Indication: CARDIAC DISORDER
     Route: 048
  3. VIEKIRAX [Suspect]
     Active Substance: OMBITASVIR\PARITAPREVIR\RITONAVIR
     Indication: HEPATIC CIRRHOSIS
  4. EXVIERA [Suspect]
     Active Substance: DASABUVIR
     Indication: HEPATIC CIRRHOSIS
  5. METOPROLOL. [Concomitant]
     Active Substance: METOPROLOL
     Indication: CARDIAC DISORDER
     Route: 048
  6. ROWATINEX [Concomitant]
     Active Substance: HERBALS
     Indication: NEPHROLITHIASIS
     Route: 048
  7. EXVIERA [Suspect]
     Active Substance: DASABUVIR
     Indication: HEPATITIS C
     Route: 048
     Dates: start: 20180428, end: 20180720
  8. ALPHA D3 [Concomitant]
     Active Substance: ALFACALCIDOL
     Indication: OSTEOPOROSIS
     Route: 048
  9. AMPRIL [Concomitant]
     Indication: CARDIAC DISORDER
     Route: 048
  10. NEUROPROTECT [Concomitant]
     Indication: SPINAL OSTEOARTHRITIS
     Route: 048

REACTIONS (2)
  - Renal colic [Recovered/Resolved]
  - Transaminases abnormal [Not Recovered/Not Resolved]

NARRATIVE: CASE EVENT DATE: 201809
